FAERS Safety Report 24240182 (Version 1)
Quarter: 2024Q3

REPORT INFORMATION
  Report Type: Spontaneous
  Country: CN (occurrence: CN)
  Receive Date: 20240822
  Receipt Date: 20240822
  Transmission Date: 20241016
  Serious: Yes (Hospitalization, Other)
  Sender: ELI LILLY AND CO
  Company Number: CN-Merck Healthcare KGaA-2024043817

PATIENT
  Age: 61 Year
  Sex: Male
  Weight: 60 kg

DRUGS (5)
  1. ERBITUX [Suspect]
     Active Substance: CETUXIMAB
     Indication: Gingival cancer
     Dosage: 600 MG, UNK
     Route: 041
     Dates: start: 20240704, end: 20240704
  2. CAPECITABINE [Suspect]
     Active Substance: CAPECITABINE
     Indication: Gingival cancer
     Dosage: 1.5 G, UNK
     Route: 048
     Dates: start: 20240703, end: 20240711
  3. CISPLATIN [Suspect]
     Active Substance: CISPLATIN
     Indication: Gingival cancer
     Dosage: 40 MG, UNK
     Route: 041
     Dates: start: 20240704, end: 20240706
  4. SODIUM CHLORIDE [Concomitant]
     Active Substance: SODIUM CHLORIDE
     Indication: Medication dilution
     Dosage: 250 UNK, UNKNOWN
     Route: 041
     Dates: start: 20240704, end: 20240706
  5. SODIUM CHLORIDE [Concomitant]
     Active Substance: SODIUM CHLORIDE
     Dosage: 500 ML, UNKNOWN
     Route: 041
     Dates: start: 20240704, end: 20240704

REACTIONS (2)
  - White blood cell count decreased [Recovering/Resolving]
  - Platelet count decreased [Recovering/Resolving]

NARRATIVE: CASE EVENT DATE: 20240709
